FAERS Safety Report 4276623-X (Version None)
Quarter: 2004Q1

REPORT INFORMATION
  Report Type: 
  Country: None (occurrence: None)
  Receive Date: 20040120
  Receipt Date: 20040108
  Transmission Date: 20041129
  Serious: Yes (Other)
  Sender: FDA-Public Use
  Company Number: 200314846BCC

PATIENT
  Age: 43 Year
  Sex: Female
  Weight: 58.0604 kg

DRUGS (2)
  1. ALEVE [Suspect]
     Indication: BACK PAIN
     Dosage: 440 MG, TOTAL DAILY, ORAL
     Route: 048
     Dates: start: 20031228
  2. ALEVE [Suspect]
     Indication: MUSCLE CRAMP
     Dosage: 440 MG, TOTAL DAILY, ORAL
     Route: 048
     Dates: start: 20031228

REACTIONS (7)
  - BODY TEMPERATURE INCREASED [None]
  - CHILLS [None]
  - FATIGUE [None]
  - FEELING COLD [None]
  - KIDNEY INFECTION [None]
  - SHOCK [None]
  - TREMOR [None]
